FAERS Safety Report 22331007 (Version 1)
Quarter: 2023Q2

REPORT INFORMATION
  Report Type: Spontaneous
  Country: NP (occurrence: NP)
  Receive Date: 20230517
  Receipt Date: 20230517
  Transmission Date: 20230722
  Serious: Yes (Hospitalization, Other)
  Sender: FDA-Public Use
  Company Number: NP-INGENUS PHARMACEUTICALS NJ, LLC-2023ING000007

PATIENT
  Age: 46 Year
  Sex: Male

DRUGS (1)
  1. MORPHINE [Suspect]
     Active Substance: MORPHINE
     Indication: Product used for unknown indication
     Dosage: UNK
     Route: 065

REACTIONS (3)
  - Herpes simplex meningoencephalitis [Recovering/Resolving]
  - Drug dependence [Unknown]
  - Drug abuse [Unknown]
